FAERS Safety Report 6142500-2 (Version None)
Quarter: 2009Q2

REPORT INFORMATION
  Report Type: 
  Country: None (occurrence: None)
  Receive Date: 20090403
  Receipt Date: 20090323
  Transmission Date: 20091009
  Serious: Yes (Other)
  Sender: FDA-Public Use
  Company Number: NL-ELI_LILLY_AND_COMPANY-NL200903005921

PATIENT
  Sex: Female

DRUGS (1)
  1. FORTEO [Suspect]
     Indication: RHEUMATOID ARTHRITIS
     Dosage: 750/3 ML
     Route: 058
     Dates: start: 20090311

REACTIONS (2)
  - HERNIA [None]
  - PAIN [None]
